FAERS Safety Report 10062043 (Version 2)
Quarter: 2014Q2

REPORT INFORMATION
  Report Type: Spontaneous
  Country: FR (occurrence: None)
  Receive Date: 20140404
  Receipt Date: 20140410
  Transmission Date: 20141212
  Serious: Yes (Other)
  Sender: FDA-Public Use
  Company Number: 7279147

PATIENT
  Age: 53 Year
  Sex: Female

DRUGS (2)
  1. LEVOTHYROX [Suspect]
     Indication: PRODUCT USED FOR UNKNOWN INDICATION
     Dosage: (125 MCG, 1 IN 1 D)
     Dates: start: 20140131
  2. INSULIN (INSULIN) (INSULIN) [Concomitant]

REACTIONS (3)
  - Angioedema [None]
  - Paraesthesia [None]
  - Swelling face [None]
